FAERS Safety Report 6836887-2 (Version None)
Quarter: 2010Q3

REPORT INFORMATION
  Report Type: 
  Country: None (occurrence: None)
  Receive Date: 20100713
  Receipt Date: 20070502
  Transmission Date: 20110219
  Serious: No
  Sender: FDA-Public Use
  Company Number: US-PFIZER INC-2007036101

PATIENT
  Sex: Female
  Weight: 68.95 kg

DRUGS (7)
  1. CHANTIX [Suspect]
     Indication: SMOKING CESSATION THERAPY
     Dates: start: 20070401
  2. MORPHINE [Concomitant]
     Indication: PAIN
  3. DARVOCET [Concomitant]
  4. SALBUTAMOL [Concomitant]
  5. ADVAIR DISKUS 100/50 [Concomitant]
  6. ESTROGEN NOS [Concomitant]
  7. TYLENOL [Concomitant]

REACTIONS (1)
  - NAUSEA [None]
